FAERS Safety Report 19186366 (Version 4)
Quarter: 2023Q1

REPORT INFORMATION
  Report Type: Report from Study
  Country: BE (occurrence: BE)
  Receive Date: 20210427
  Receipt Date: 20230317
  Transmission Date: 20230417
  Serious: Yes (Hospitalization, Other)
  Sender: FDA-Public Use
  Company Number: BE-MERCK HEALTHCARE KGAA-9230984

PATIENT
  Age: 67 Year
  Sex: Male
  Weight: 87 kg

DRUGS (5)
  1. AVELUMAB [Suspect]
     Active Substance: AVELUMAB
     Indication: Bladder transitional cell carcinoma
     Dosage: 870 MG, CYCLIC (ONCE EVERY 2 WEEKS)
     Route: 042
     Dates: start: 20210324
  2. CISPLATIN [Suspect]
     Active Substance: CISPLATIN
     Indication: Bladder transitional cell carcinoma
     Dosage: 142.8 MG, CYCLIC (ONCE EVERY 2 WEEKS)
     Route: 042
     Dates: start: 20210324
  3. METHOTREXATE SODIUM [Suspect]
     Active Substance: METHOTREXATE SODIUM
     Indication: Bladder transitional cell carcinoma
     Dosage: 61.2 MG, CYCLIC (ONCE EVERY 2 WEEKS)
     Route: 042
     Dates: start: 20210323
  4. DOXORUBICIN HYDROCHLORIDE [Suspect]
     Active Substance: DOXORUBICIN HYDROCHLORIDE
     Indication: Bladder transitional cell carcinoma
     Dosage: 61.2 MG, CYCLIC (ONCE EVERY 2 WEEKS)
     Route: 042
     Dates: start: 20210324
  5. VINBLASTINE [Suspect]
     Active Substance: VINBLASTINE
     Indication: Bladder transitional cell carcinoma
     Dosage: 6.12 MG, CYCLIC (ONCE EVERY 2 WEEKS)
     Route: 042
     Dates: start: 20210324

REACTIONS (2)
  - Chronic kidney disease [Unknown]
  - Acute kidney injury [Recovered/Resolved with Sequelae]

NARRATIVE: CASE EVENT DATE: 20210330
